FAERS Safety Report 4390577-7 (Version None)
Quarter: 2004Q2

REPORT INFORMATION
  Report Type: 
  Country: None (occurrence: None)
  Receive Date: 20040630
  Receipt Date: 20040618
  Transmission Date: 20050107
  Serious: Yes (Hospitalization, Disabling)
  Sender: FDA-Public Use
  Company Number: K200301501

PATIENT
  Age: 64 Year
  Sex: Male
  Weight: 67.1 kg

DRUGS (11)
  1. ALTACE [Suspect]
     Indication: PROPHYLAXIS
     Dosage: ORAL
     Route: 048
     Dates: start: 20030404
  2. MICARDIS [Suspect]
     Indication: PROPHYLAXIS
     Dosage: ORAL
     Route: 048
     Dates: start: 20030404, end: 20030101
  3. MICARDIS [Suspect]
     Indication: PROPHYLAXIS
     Dosage: ORAL
     Route: 048
     Dates: start: 20031219
  4. ASPIRIN [Concomitant]
  5. SILDENAFIL (SILDENAFIL) [Concomitant]
  6. SIMVASTATIN [Concomitant]
  7. RANITIDINE [Concomitant]
  8. INSULIN [Concomitant]
  9. GLYBURIDE [Concomitant]
  10. PHENYTOIN [Concomitant]
  11. LISINOPRIL [Concomitant]

REACTIONS (3)
  - FALL [None]
  - HEAD INJURY [None]
  - SUBARACHNOID HAEMORRHAGE [None]
